FAERS Safety Report 19677742 (Version 1)
Quarter: 2021Q3

REPORT INFORMATION
  Report Type: Spontaneous
  Country: US (occurrence: US)
  Receive Date: 20210809
  Receipt Date: 20210809
  Transmission Date: 20211014
  Serious: Yes (Hospitalization, Other)
  Sender: FDA-Public Use
  Company Number: US-PFIZER INC-202100972538

PATIENT
  Age: 58 Year
  Sex: Male
  Weight: 107.94 kg

DRUGS (13)
  1. LEVOFLOXACIN. [Concomitant]
     Active Substance: LEVOFLOXACIN
  2. AMLODIPINE BESYLATE. [Concomitant]
     Active Substance: AMLODIPINE BESYLATE
  3. TYLENOL [Concomitant]
     Active Substance: ACETAMINOPHEN
  4. INLYTA [Suspect]
     Active Substance: AXITINIB
     Indication: RENAL CANCER
     Dosage: 3 MG, 2X/DAY
     Route: 048
     Dates: start: 20210130
  5. LEVOTHYROXINE SODIUM. [Concomitant]
     Active Substance: LEVOTHYROXINE SODIUM
  6. METFORMIN [Concomitant]
     Active Substance: METFORMIN HYDROCHLORIDE
  7. CARVEDILOL. [Concomitant]
     Active Substance: CARVEDILOL
  8. ONDANSETRON HCL [Concomitant]
     Active Substance: ONDANSETRON HYDROCHLORIDE
  9. PREDNISONE. [Concomitant]
     Active Substance: PREDNISONE
  10. COVID?19 VACCINE [Concomitant]
  11. PRAVASTATIN SODIUM. [Concomitant]
     Active Substance: PRAVASTATIN SODIUM
  12. SINUS DECONGESTANT [Concomitant]
     Active Substance: PHENYLEPHRINE HYDROCHLORIDE
  13. LINEZOLID. [Concomitant]
     Active Substance: LINEZOLID

REACTIONS (2)
  - Pneumonia [Unknown]
  - Diarrhoea [Unknown]
